FAERS Safety Report 5198938-3 (Version None)
Quarter: 2006Q4

REPORT INFORMATION
  Report Type: 
  Country: None (occurrence: None)
  Receive Date: 20060921
  Receipt Date: 20060322
  Transmission Date: 20070319
  Serious: Yes (Hospitalization)
  Sender: FDA-Public Use
  Company Number: 2006041147

PATIENT
  Age: 82 Year
  Sex: Female

DRUGS (1)
  1. DILANTIN [Suspect]
     Indication: CONVULSION
     Dates: start: 20060201

REACTIONS (3)
  - DYSARTHRIA [None]
  - JOINT STIFFNESS [None]
  - PYREXIA [None]
